FAERS Safety Report 8890101 (Version 1)
Quarter: 2012Q4

REPORT INFORMATION
  Report Type: 
  Country: JP (occurrence: JP)
  Receive Date: 20121107
  Receipt Date: 20121107
  Transmission Date: 20130627
  Serious: Yes (Hospitalization)
  Sender: FDA-Public Use
  Company Number: JP-BRISTOL-MYERS SQUIBB COMPANY-17110305

PATIENT
  Age: 74 Year
  Sex: Male

DRUGS (1)
  1. CISPLATIN [Suspect]
     Indication: GASTRIC CANCER
     Dosage: 6 courses

REACTIONS (1)
  - Iliac artery embolism [Unknown]
